FAERS Safety Report 15571948 (Version 2)
Quarter: 2019Q1

REPORT INFORMATION
  Report Type: Spontaneous
  Country: US (occurrence: US)
  Receive Date: 20181031
  Receipt Date: 20190318
  Transmission Date: 20190417
  Serious: Yes (Hospitalization)
  Sender: FDA-Public Use
  Company Number: US-EMMAUS MEDICAL, INC.-EMM201810-000716

PATIENT
  Sex: Female

DRUGS (1)
  1. ENDARI [Suspect]
     Active Substance: GLUTAMINE
     Indication: SICKLE CELL DISEASE
     Route: 048
     Dates: start: 20180501

REACTIONS (6)
  - Sickle cell disease [Unknown]
  - Vomiting [Unknown]
  - Pneumonia [Unknown]
  - Product dose omission [Unknown]
  - Nausea [Unknown]
  - Influenza [Unknown]
